FAERS Safety Report 8881928 (Version 1)
Quarter: 2012Q4

REPORT INFORMATION
  Report Type: 
  Country: CA (occurrence: CA)
  Receive Date: 20121102
  Receipt Date: 20121102
  Transmission Date: 20130627
  Serious: Yes (Other)
  Sender: FDA-Public Use
  Company Number: PHHY2008CA00894

PATIENT
  Age: 56 Year
  Sex: Female

DRUGS (2)
  1. SANDOSTATIN LAR [Suspect]
     Indication: CARCINOID TUMOUR
     Dosage: 30 mg, QMO
     Route: 030
     Dates: start: 20080117
  2. HYDROMORPHONE [Concomitant]

REACTIONS (4)
  - Mediastinum neoplasm [Unknown]
  - Feeling of body temperature change [Unknown]
  - Nausea [Unknown]
  - Constipation [Unknown]
